FAERS Safety Report 20668179 (Version 1)
Quarter: 2022Q2

REPORT INFORMATION
  Report Type: Report from Study
  Country: US (occurrence: US)
  Receive Date: 20220404
  Receipt Date: 20220404
  Transmission Date: 20220721
  Serious: Yes (Other)
  Sender: FDA-Public Use
  Company Number: US-ORPHANEU-2021003002

PATIENT

DRUGS (1)
  1. ISTURISA [Suspect]
     Active Substance: OSILODROSTAT PHOSPHATE
     Indication: Pituitary-dependent Cushing^s syndrome
     Dosage: 1 MILLIGRAM TWICE DAILY
     Route: 048
     Dates: start: 20210712, end: 20210720

REACTIONS (2)
  - Electrocardiogram QT prolonged [Unknown]
  - Heart rate irregular [Unknown]

NARRATIVE: CASE EVENT DATE: 20210701
